FAERS Safety Report 6433083-8 (Version None)
Quarter: 2009Q4

REPORT INFORMATION
  Report Type: 
  Country: None (occurrence: None)
  Receive Date: 20091105
  Receipt Date: 20090921
  Transmission Date: 20100525
  Serious: Yes (Death, Hospitalization)
  Sender: FDA-Public Use
  Company Number: ENTC2009-0385

PATIENT
  Age: 84 Year
  Sex: Male

DRUGS (1)
  1. STALEVO 100 [Suspect]
     Indication: PARKINSON'S DISEASE
     Dosage: 100 MG 1 TABLET DAILY
     Dates: start: 20090401

REACTIONS (2)
  - CARDIAC ARREST [None]
  - CARDIAC FAILURE [None]
